FAERS Safety Report 18666518 (Version 1)
Quarter: 2020Q4

REPORT INFORMATION
  Report Type: Spontaneous
  Country: NL (occurrence: NL)
  Receive Date: 20201227
  Receipt Date: 20201227
  Transmission Date: 20210114
  Serious: Yes (Other)
  Sender: FDA-Public Use
  Company Number: NL-TEVA-2020-NL-1861343

PATIENT
  Sex: Female
  Weight: 59 kg

DRUGS (3)
  1. OMEPRAZOL CAPSULE MSR 20MG / BRAND NAME NOT SPECIFIED [Concomitant]
     Active Substance: OMEPRAZOLE
     Dosage: THERAPY START DATE AND THERAPY END DATE : ASKED BUT UNKNOWN
  2. ATOMOXETINE CAPSULE 18MG / BRAND NAME NOT SPECIFIED [Suspect]
     Active Substance: ATOMOXETINE
     Indication: ATTENTION DEFICIT HYPERACTIVITY DISORDER
     Dosage: 18 MILLIGRAM DAILY;
     Dates: start: 201905, end: 20201003
  3. OXAZEPAM TABLET 10MG / BRAND NAME NOT SPECIFIED [Concomitant]
     Active Substance: OXAZEPAM
     Dosage: 10 MG ,  THERAPY START DATE AND THERAPY END DATE : ASKED BUT UNKNOWN

REACTIONS (2)
  - Raynaud^s phenomenon [Not Recovered/Not Resolved]
  - Joint swelling [Not Recovered/Not Resolved]
